FAERS Safety Report 4692016-5 (Version None)
Quarter: 2005Q2

REPORT INFORMATION
  Report Type: 
  Country: None (occurrence: None)
  Receive Date: 20050616
  Receipt Date: 20050616
  Transmission Date: 20051028
  Serious: Yes (Other)
  Sender: FDA-Public Use
  Company Number: None

PATIENT
  Age: 29 Year
  Sex: Female
  Weight: 72.5755 kg

DRUGS (1)
  1. TOPAMAX [Suspect]
     Indication: MIGRAINE
     Dosage: 25MG    2 TIMES A DAY    ORAL
     Route: 048
     Dates: start: 20050607, end: 20050615

REACTIONS (2)
  - HYPOAESTHESIA [None]
  - PARAESTHESIA [None]
